FAERS Safety Report 8418206-3 (Version None)
Quarter: 2012Q2

REPORT INFORMATION
  Report Type: 
  Country: None (occurrence: None)
  Receive Date: 20120607
  Receipt Date: 20120529
  Transmission Date: 20120825
  Serious: Yes (Other)
  Sender: FDA-Public Use
  Company Number: JP-VERTEX PHARMACEUTICALS INC.-AE-2012-008093

PATIENT
  Age: 63 Year
  Sex: Male

DRUGS (10)
  1. ACETAMINOPHEN [Concomitant]
     Route: 048
     Dates: start: 20120413
  2. REBETOL [Concomitant]
     Indication: HEPATITIS C
     Route: 048
     Dates: start: 20120403, end: 20120409
  3. ROXATIDINE ACETATE HCL [Concomitant]
     Route: 048
  4. TELAVIC (TELAPREVIR) [Suspect]
     Indication: HEPATITIS C
     Route: 048
     Dates: start: 20120403, end: 20120405
  5. ACETAMINOPHEN [Concomitant]
     Route: 048
     Dates: start: 20120410, end: 20120411
  6. REBETOL [Concomitant]
     Route: 048
     Dates: start: 20120410, end: 20120502
  7. TELAVIC (TELAPREVIR) [Suspect]
     Route: 048
     Dates: start: 20120406, end: 20120514
  8. PEGINTERFERON ALFA-2B [Concomitant]
     Indication: HEPATITIS C
     Route: 051
     Dates: start: 20120402
  9. ACETAMINOPHEN [Concomitant]
     Route: 048
     Dates: start: 20120403, end: 20120403
  10. OLOPATADINE HCL [Concomitant]
     Route: 048

REACTIONS (2)
  - PANCYTOPENIA [None]
  - HAEMOGLOBIN DECREASED [None]
